FAERS Safety Report 9900736 (Version 2)
Quarter: 2014Q1

REPORT INFORMATION
  Report Type: Spontaneous
  Country: RS (occurrence: RS)
  Receive Date: 20140217
  Receipt Date: 20140306
  Transmission Date: 20141002
  Serious: Yes (Hospitalization)
  Sender: FDA-Public Use
  Company Number: RS-RANBAXY-2014RR-78181

PATIENT
  Age: 77 Year
  Sex: Male
  Weight: 120 kg

DRUGS (3)
  1. SIMVOR 40MG FILM-COATED TABLETS [Suspect]
     Indication: HYPERCHOLESTEROLAEMIA
     Dosage: 40 MG/DAY
     Route: 048
     Dates: end: 201312
  2. QUETIAPINE [Concomitant]
     Indication: DEMENTIA
     Dosage: 100 MG/DAY
     Route: 048
     Dates: start: 20131217
  3. ASPIRIN [Concomitant]
     Indication: PRODUCT USED FOR UNKNOWN INDICATION
     Dosage: 100 MG/DAY
     Route: 048
     Dates: end: 201312

REACTIONS (4)
  - Asthenia [Unknown]
  - Back pain [Unknown]
  - Renal failure acute [Not Recovered/Not Resolved]
  - Ileus paralytic [Recovered/Resolved]
